FAERS Safety Report 23860687 (Version 4)
Quarter: 2024Q4

REPORT INFORMATION
  Report Type: Report from Study
  Country: CA (occurrence: CA)
  Receive Date: 20240516
  Receipt Date: 20241226
  Transmission Date: 20250114
  Serious: Yes (Death, Hospitalization, Other)
  Sender: SANDOZ
  Company Number: CA-SANDOZ-SDZ2024CA048637

PATIENT
  Sex: Female

DRUGS (3)
  1. FULVESTRANT [Suspect]
     Active Substance: FULVESTRANT
     Dosage: 500 MG, OTHER;DAY 1, 15 + 28 THAN Q28D
     Route: 065
     Dates: start: 20240520, end: 2024
  2. FULVESTRANT [Suspect]
     Active Substance: FULVESTRANT
     Indication: Breast cancer metastatic
     Dosage: UNK
     Route: 065
  3. FASLODEX [Concomitant]
     Active Substance: FULVESTRANT
     Indication: Product used for unknown indication
     Dosage: 500 MG, DAY 1, 15 + 28 THAN Q28D
     Route: 065

REACTIONS (11)
  - Death [Fatal]
  - Pain [Unknown]
  - Blood glucose increased [Unknown]
  - Breast cancer metastatic [Unknown]
  - Metastases to bone [Unknown]
  - Pain in extremity [Unknown]
  - Metastases to lung [Unknown]
  - Metastases to liver [Unknown]
  - Metastases to chest wall [Unknown]
  - Cauda equina syndrome [Unknown]
  - Spinal cord compression [Unknown]
